FAERS Safety Report 15883608 (Version 1)
Quarter: 2019Q1

REPORT INFORMATION
  Report Type: Spontaneous
  Country: US (occurrence: US)
  Receive Date: 20190129
  Receipt Date: 20190129
  Transmission Date: 20190417
  Serious: No
  Sender: FDA-Public Use
  Company Number: US-TEVA-2019-US-995028

PATIENT
  Age: 78 Year
  Sex: Female

DRUGS (2)
  1. VIVELLE [Concomitant]
     Active Substance: ESTRADIOL
  2. PROGESTERONE TEVA [Suspect]
     Active Substance: PROGESTERONE
     Indication: ENDOMETRIAL HYPERPLASIA
     Dates: start: 201812

REACTIONS (3)
  - Drug ineffective [Unknown]
  - Product substitution issue [Unknown]
  - Vaginal haemorrhage [Unknown]

NARRATIVE: CASE EVENT DATE: 201812
